FAERS Safety Report 7211715-4 (Version None)
Quarter: 2011Q1

REPORT INFORMATION
  Report Type: 
  Country: None (occurrence: None)
  Receive Date: 20110105
  Receipt Date: 20101231
  Transmission Date: 20110831
  Serious: Yes (Other)
  Sender: FDA-Public Use
  Company Number: GB-PFIZER INC-2011000153

PATIENT
  Age: 27 Year
  Sex: Female
  Weight: 81 kg

DRUGS (3)
  1. FLUCONAZOLE [Concomitant]
     Indication: CANDIDIASIS
     Dosage: 150 MG, SINGLE
     Route: 048
     Dates: start: 20100708, end: 20100708
  2. FLUCLOXACILLIN [Concomitant]
     Indication: MASTITIS
     Dosage: 500 MG, UNK
     Dates: start: 20100628
  3. MEDROXYPROGESTERONE ACETATE [Suspect]
     Indication: CONTRACEPTION
     Dosage: 150 MG, UNK
     Route: 030
     Dates: start: 20100721

REACTIONS (2)
  - ARTHRALGIA [None]
  - CONJUNCTIVITIS [None]
